FAERS Safety Report 14267738 (Version 2)
Quarter: 2020Q4

REPORT INFORMATION
  Report Type: Spontaneous
  Country: US (occurrence: US)
  Receive Date: 20171211
  Receipt Date: 20201130
  Transmission Date: 20210113
  Serious: No
  Sender: FDA-Public Use
  Company Number: US-ROCHE-1908590

PATIENT
  Sex: Female

DRUGS (7)
  1. LEVOTHYROXIN [Concomitant]
     Active Substance: LEVOTHYROXINE
  2. PANTOPRAZOLE [Concomitant]
     Active Substance: PANTOPRAZOLE
  3. ESCITALOPRAM [Concomitant]
     Active Substance: ESCITALOPRAM OXALATE
  4. DIAZEPAM. [Concomitant]
     Active Substance: DIAZEPAM
     Route: 065
  5. LUCENTIS [Suspect]
     Active Substance: RANIBIZUMAB
     Indication: NEOVASCULAR AGE-RELATED MACULAR DEGENERATION
     Dosage: 0.5ML 0.5ML - ADMINISTRATION INTO EACH EYE?AS NEEDED
     Route: 050
     Dates: start: 20160820
  6. LUCENTIS [Suspect]
     Active Substance: RANIBIZUMAB
     Dosage: INJECT 1 SYRINGE INTRAVITREALLY INTO EACH EYE ONCE MONTHLY.
     Route: 050
  7. RALOXIFENE. [Concomitant]
     Active Substance: RALOXIFENE

REACTIONS (2)
  - Eye irritation [Not Recovered/Not Resolved]
  - Eye irritation [Unknown]
